FAERS Safety Report 20957621 (Version 2)
Quarter: 2022Q4

REPORT INFORMATION
  Report Type: Spontaneous
  Country: GB (occurrence: GB)
  Receive Date: 20220614
  Receipt Date: 20221228
  Transmission Date: 20230113
  Serious: Yes (Other)
  Sender: FDA-Public Use
  Company Number: DK-GILEAD-2021-0557283

PATIENT
  Age: 57 Year
  Sex: Male

DRUGS (12)
  1. TENOFOVIR [Suspect]
     Active Substance: TENOFOVIR
     Indication: HIV infection
     Dosage: 245 MILLIGRAM, QD, TABLET
     Route: 065
  2. TENOFOVIR [Suspect]
     Active Substance: TENOFOVIR
     Indication: Chronic hepatitis B
     Dosage: 245 MILLIGRAM, QD
     Route: 065
     Dates: start: 2004
  3. TENOFOVIR [Suspect]
     Active Substance: TENOFOVIR
     Dosage: 25 MILLIGRAM, QD, TABLET
     Route: 065
     Dates: start: 201909
  4. ENTECAVIR [Suspect]
     Active Substance: ENTECAVIR
     Indication: Chronic hepatitis B
     Dosage: 0.5 MILLIGRAM, QD
     Route: 065
     Dates: start: 2014, end: 201810
  5. ENTECAVIR [Suspect]
     Active Substance: ENTECAVIR
     Indication: HIV associated nephropathy
     Dosage: 0.5 MILLIGRAM, QOD (EVERY SECOND DAY)
     Route: 065
     Dates: start: 201810, end: 2019
  6. ENTECAVIR [Suspect]
     Active Substance: ENTECAVIR
     Dosage: 0.5 MILLIGRAM, QD
     Route: 065
  7. LAMIVUDINE [Suspect]
     Active Substance: LAMIVUDINE
     Indication: HIV infection
     Dosage: 150 MILLIGRAM, BID
     Route: 065
     Dates: start: 1996, end: 2004
  8. LAMIVUDINE [Suspect]
     Active Substance: LAMIVUDINE
     Dosage: UNK
     Route: 065
     Dates: start: 201904
  9. TENOFOVIR ALAFENAMIDE [Suspect]
     Active Substance: TENOFOVIR ALAFENAMIDE
     Indication: Chronic hepatitis B
     Dosage: 25 MILLIGRAM, QD
     Route: 065
     Dates: start: 201909
  10. TENOFOVIR ALAFENAMIDE [Suspect]
     Active Substance: TENOFOVIR ALAFENAMIDE
     Dosage: 25 MILLIGRAM, ONCE EVERY 3 DAYS
     Route: 065
  11. TELBIVUDINE [Suspect]
     Active Substance: TELBIVUDINE
     Indication: HIV infection
     Dosage: UNK
     Route: 065
  12. WARFARIN [Concomitant]
     Active Substance: WARFARIN
     Indication: Atrial fibrillation
     Dosage: UNK
     Route: 065
     Dates: start: 2018

REACTIONS (5)
  - HIV associated nephropathy [Unknown]
  - Drug resistance [Unknown]
  - Drug ineffective [Unknown]
  - Viral load increased [Not Recovered/Not Resolved]
  - Off label use [Unknown]

NARRATIVE: CASE EVENT DATE: 20190401
